FAERS Safety Report 6800345-1 (Version None)
Quarter: 2010Q2

REPORT INFORMATION
  Report Type: 
  Country: None (occurrence: None)
  Receive Date: 20100616
  Receipt Date: 20100601
  Transmission Date: 20101027
  Serious: Yes (Hospitalization, Congenital Anomaly)
  Sender: FDA-Public Use
  Company Number: B0659940A

PATIENT
  Sex: Male

DRUGS (5)
  1. FLUTICASONE PROPIONATE+SALMETEROL XINAFOATE (FORMULATION UNK (FLUTICAS [Suspect]
     Dosage: TRANSPLACENTARY
     Route: 064
  2. BECLOMETHASONE DIPROPIONATE (FORMULATION UNKNOWN) (GENERIC) (BECLOMETH [Suspect]
     Dosage: TRANSPLACENTARY
     Route: 064
  3. PREDNISONE [Suspect]
     Dosage: TRANSPLACENTARY
     Route: 064
  4. OMEPRAZOLE [Suspect]
     Dosage: TRANSPLACENTARY
     Route: 064
  5. HYDROXYZINE [Suspect]
     Dosage: TRANSPLACENTARY
     Route: 064

REACTIONS (12)
  - ADRENAL INSUFFICIENCY NEONATAL [None]
  - BLOOD CORTISOL DECREASED [None]
  - CONVULSION NEONATAL [None]
  - DRUG WITHDRAWAL SYNDROME NEONATAL [None]
  - ERYSIPELAS [None]
  - HAEMANGIOMA OF SKIN [None]
  - HEART RATE INCREASED [None]
  - HYPOGLYCAEMIC SEIZURE [None]
  - HYPOSPADIAS [None]
  - HYPOTHALAMO-PITUITARY DISORDER [None]
  - MATERNAL DRUGS AFFECTING FOETUS [None]
  - NEONATAL DISORDER [None]
